FAERS Safety Report 12875327 (Version 1)
Quarter: 2016Q4

REPORT INFORMATION
  Report Type: Spontaneous
  Country: US (occurrence: US)
  Receive Date: 20161024
  Receipt Date: 20161024
  Transmission Date: 20170207
  Serious: No
  Sender: FDA-Public Use
  Company Number: US-AUROBINDO-AUR-APU-2016-01695

PATIENT
  Sex: Male

DRUGS (1)
  1. AMLODIPINE BESYLATE AND BENAZEPRIL HYDROCHLORIDE CAPSULES [Suspect]
     Active Substance: AMLODIPINE BESYLATE\BENAZEPRIL HYDROCHLORIDE
     Indication: PRODUCT USED FOR UNKNOWN INDICATION
     Dosage: 5/40 MG
     Route: 065

REACTIONS (3)
  - Hypertension [Unknown]
  - Product substitution issue [Unknown]
  - Drug ineffective [Unknown]
